FAERS Safety Report 5370648-9 (Version None)
Quarter: 2007Q2

REPORT INFORMATION
  Report Type: 
  Country: None (occurrence: None)
  Receive Date: 20070626
  Receipt Date: 20070621
  Transmission Date: 20071010
  Serious: Yes (Life-Threatening, Hospitalization)
  Sender: FDA-Public Use
  Company Number: VE-BAXTER-2007BH005236

PATIENT
  Age: 40 Year
  Sex: Male

DRUGS (5)
  1. SUPRANE [Suspect]
     Indication: ANAESTHESIA
     Dosage: DOSE UNIT:UNKNOWN
     Route: 055
     Dates: start: 20070608, end: 20070608
  2. PROPOFOL [Concomitant]
     Indication: DRUG USE FOR UNKNOWN INDICATION
     Dosage: DOSE UNIT:UNKNOWN
     Route: 065
     Dates: start: 20070608, end: 20070608
  3. REMIFENTANYL [Concomitant]
     Indication: DRUG USE FOR UNKNOWN INDICATION
     Dosage: DOSE UNIT:UNKNOWN
     Route: 065
     Dates: start: 20070608, end: 20070608
  4. ROCURONIUM BROMIDE [Concomitant]
     Indication: DRUG USE FOR UNKNOWN INDICATION
     Dosage: DOSE UNIT:UNKNOWN
     Route: 065
     Dates: start: 20070608, end: 20070608
  5. NITROUS OXIDE W/ OXYGEN [Concomitant]
     Indication: DRUG USE FOR UNKNOWN INDICATION
     Dosage: DOSE UNIT:UNKNOWN
     Route: 065
     Dates: start: 20070608, end: 20070608

REACTIONS (4)
  - CARDIAC ARREST [None]
  - DEVICE FAILURE [None]
  - MENTAL DISORDER [None]
  - MUSCULAR WEAKNESS [None]
